FAERS Safety Report 8225677-4 (Version None)
Quarter: 2012Q1

REPORT INFORMATION
  Report Type: 
  Country: None (occurrence: None)
  Receive Date: 20120321
  Receipt Date: 20120312
  Transmission Date: 20120608
  Serious: Yes (Hospitalization, Other)
  Sender: FDA-Public Use
  Company Number: US-ELI_LILLY_AND_COMPANY-US201203003784

PATIENT
  Sex: Female

DRUGS (12)
  1. HUMIRA [Concomitant]
     Dosage: UNK, QOD
  2. FORTEO [Suspect]
     Indication: OSTEOPOROSIS
     Dosage: 20 UG, QD
     Dates: start: 20111101
  3. METHOTREXATE [Concomitant]
     Dosage: UNK, WEEKLY (1/W)
  4. MULTI-VITAMIN [Concomitant]
  5. FOLIC ACID [Concomitant]
     Dosage: UNK, WEEKLY (1/W)
  6. PREDNISONE TAB [Concomitant]
     Dosage: 5 MG, UNK
  7. TRIAMTERENE [Concomitant]
  8. ACETAMINOPHEN [Concomitant]
     Dosage: UNK, BID
  9. ALBUTEROL [Concomitant]
     Dosage: UNK, PRN
  10. ASPIRIN [Concomitant]
  11. CARTIA                                  /HKG/ [Concomitant]
     Dosage: UNK, UNKNOWN
  12. ADVAIR DISKUS 100/50 [Concomitant]
     Dosage: UNK, BID

REACTIONS (3)
  - SPINAL FRACTURE [None]
  - FALL [None]
  - PNEUMOTHORAX [None]
